FAERS Safety Report 25712500 (Version 1)
Quarter: 2025Q3

REPORT INFORMATION
  Report Type: Report from Study
  Country: US (occurrence: US)
  Receive Date: 20250821
  Receipt Date: 20250821
  Transmission Date: 20251021
  Serious: Yes (Other)
  Sender: ALEXION PHARMACEUTICALS
  Company Number: US-AstraZeneca-CH-00934108A

PATIENT
  Age: 81 Year
  Sex: Female

DRUGS (1)
  1. CAPIVASERTIB [Suspect]
     Active Substance: CAPIVASERTIB
     Indication: Breast cancer female
     Dosage: 200 MILLIGRAM, BID
     Dates: start: 20250303

REACTIONS (5)
  - Lactose intolerance [Unknown]
  - Fluid retention [Unknown]
  - Ascites [Unknown]
  - Diabetes mellitus [Unknown]
  - Malabsorption [Unknown]

NARRATIVE: CASE EVENT DATE: 20250819
